FAERS Safety Report 10646682 (Version 2)
Quarter: 2014Q4

REPORT INFORMATION
  Report Type: Spontaneous
  Country: US (occurrence: US)
  Receive Date: 20141211
  Receipt Date: 20141229
  Transmission Date: 20150529
  Serious: Yes (Other)
  Sender: FDA-Public Use
  Company Number: US-PFIZER INC-2014335313

PATIENT
  Sex: Female

DRUGS (1)
  1. XELJANZ [Suspect]
     Active Substance: TOFACITINIB CITRATE
     Dosage: UNK

REACTIONS (6)
  - Head titubation [Unknown]
  - Vulvovaginal pain [Unknown]
  - Vaginal lesion [Unknown]
  - Skin cancer [Unknown]
  - Visual acuity reduced [Unknown]
  - Erythema [Unknown]
